FAERS Safety Report 4757967-1 (Version None)
Quarter: 2005Q3

REPORT INFORMATION
  Report Type: 
  Country: None (occurrence: None)
  Receive Date: 20050830
  Receipt Date: 20050822
  Transmission Date: 20060218
  Serious: Yes (Hospitalization)
  Sender: FDA-Public Use
  Company Number: US-2005-000481

PATIENT
  Age: 31 Year
  Sex: Male
  Weight: 83.9 kg

DRUGS (4)
  1. BETASERON [Suspect]
     Indication: MULTIPLE SCLEROSIS
     Dosage: 8 MIU, EVERY 2D, SUBCUTANEOUS
     Route: 058
     Dates: start: 20041028
  2. DITROPAN /USA/ (OXYBUTYNIN) [Concomitant]
  3. ZOLOFT [Concomitant]
  4. CORTICOSTEROIDS FOR SYSTEMIC USE [Concomitant]

REACTIONS (11)
  - AMNESIA [None]
  - APHASIA [None]
  - ASTHENIA [None]
  - CONDITION AGGRAVATED [None]
  - FAECAL INCONTINENCE [None]
  - FATIGUE [None]
  - FEELING ABNORMAL [None]
  - LOSS OF CONSCIOUSNESS [None]
  - MULTIPLE SCLEROSIS [None]
  - URINARY INCONTINENCE [None]
  - VISUAL DISTURBANCE [None]
